FAERS Safety Report 10005208 (Version 1)
Quarter: 2014Q1

REPORT INFORMATION
  Report Type: Spontaneous
  Country: TR (occurrence: TR)
  Receive Date: 20140312
  Receipt Date: 20140312
  Transmission Date: 20141002
  Serious: Yes (Hospitalization)
  Sender: FDA-Public Use
  Company Number: PHHY2014TR026177

PATIENT
  Age: 13 Year
  Sex: Female

DRUGS (10)
  1. CLOZAPINE [Suspect]
     Indication: SCHIZOPHRENIA
     Dosage: 600 MG, PER DAY
  2. CLOZAPINE [Suspect]
     Dosage: 200 MG, PER DAY
  3. CLOZAPINE [Suspect]
     Dosage: 600 MG, PER DAY
  4. AMISULPRIDE [Suspect]
     Indication: SCHIZOPHRENIA
     Dosage: 800 MG, PER DAY
  5. AMISULPRIDE [Suspect]
     Dosage: 400 MG, PER DAY
  6. AMISULPRIDE [Suspect]
     Dosage: 800 MG, PER DAY
  7. VALPROIC ACID [Suspect]
     Indication: SCHIZOPHRENIA
     Dosage: 1000 MG, PER DAY
  8. RISPERIDONE [Suspect]
     Indication: SCHIZOPHRENIA
     Dosage: 8 MG, PER DAY
  9. QUETIAPINE [Suspect]
     Indication: SCHIZOPHRENIA
     Dosage: 900 MG, PER DAY
  10. HALOPERIDOL [Suspect]
     Indication: SCHIZOPHRENIA
     Dosage: 2 MG, PER DAY

REACTIONS (9)
  - Schizophrenia, undifferentiated type [Recovering/Resolving]
  - Irritability [Recovering/Resolving]
  - Aggression [Recovering/Resolving]
  - Insomnia [Recovering/Resolving]
  - Suspiciousness [Recovering/Resolving]
  - Abnormal behaviour [Recovering/Resolving]
  - Akathisia [Unknown]
  - Salivary hypersecretion [Unknown]
  - Drug ineffective [Unknown]
